FAERS Safety Report 4724221-3 (Version None)
Quarter: 2005Q3

REPORT INFORMATION
  Report Type: 
  Country: None (occurrence: None)
  Receive Date: 20050726
  Receipt Date: 20050617
  Transmission Date: 20060218
  Serious: Yes (Hospitalization, Other)
  Sender: FDA-Public Use
  Company Number: PHBS2005CA08858

PATIENT
  Age: 21 Year
  Sex: Female

DRUGS (3)
  1. CLOZARIL [Suspect]
     Indication: SCHIZOPHRENIA
     Dosage: 100-275 MG/D
     Route: 048
     Dates: start: 20050523, end: 20050617
  2. ZITHROMAX [Concomitant]
     Dosage: 250 MG/D
     Route: 065
  3. CLONAZEPAM [Concomitant]
     Dosage: 0.5 MG, BID
     Route: 065

REACTIONS (10)
  - CLOSTRIDIAL INFECTION [None]
  - COLITIS [None]
  - DIARRHOEA [None]
  - DIZZINESS [None]
  - EOSINOPHIL COUNT INCREASED [None]
  - EOSINOPHILIA [None]
  - FATIGUE [None]
  - PYREXIA [None]
  - TACHYCARDIA [None]
  - WHITE BLOOD CELL COUNT INCREASED [None]
